FAERS Safety Report 7026818-7 (Version None)
Quarter: 2010Q4

REPORT INFORMATION
  Report Type: 
  Country: None (occurrence: None)
  Receive Date: 20101004
  Receipt Date: 20100924
  Transmission Date: 20110411
  Serious: Yes (Death, Life-Threatening, Other)
  Sender: FDA-Public Use
  Company Number: US-GENZYME-CLOF-1001108

PATIENT
  Sex: Male
  Weight: 15.9 kg

DRUGS (9)
  1. CLOLAR [Suspect]
     Indication: ACUTE MYELOID LEUKAEMIA
     Dosage: 36 MG, QDX5
     Route: 042
     Dates: start: 20090703, end: 20090707
  2. CLOLAR [Suspect]
     Dosage: 36 MG, QDX5
     Route: 042
     Dates: start: 20090727, end: 20090731
  3. FLUDARABINE [Suspect]
     Indication: ACUTE MYELOID LEUKAEMIA
     Dosage: 20 MG, QDX5
     Route: 042
     Dates: start: 20090527, end: 20090531
  4. GRANULOCYTE COLONY STIMULATING FACTOR [Suspect]
     Indication: ACUTE MYELOID LEUKAEMIA
     Dosage: 75 MCG, QD
     Route: 065
     Dates: start: 20090526, end: 20090601
  5. CYTARABINE [Suspect]
     Indication: ACUTE MYELOID LEUKAEMIA
     Dosage: 700 MG, QDX5
     Route: 065
     Dates: start: 20090701, end: 20090705
  6. CYTARABINE [Concomitant]
     Dosage: UNK INTERMITTENT PER PROTOCOL
     Route: 042
     Dates: start: 20080908
  7. FLUCONAZOLE [Concomitant]
     Indication: ANTIFUNGAL PROPHYLAXIS
     Dosage: UNK
     Route: 042
     Dates: start: 20090501
  8. TPN ELECTROLYTES IN PLASTIC CONTAINER [Concomitant]
     Indication: NUTRITIONAL SUPPORT
     Route: 042
  9. ACYCLOVIR SODIUM [Concomitant]
     Indication: PROPHYLAXIS
     Route: 042

REACTIONS (7)
  - CAROTID ARTERY OCCLUSION [None]
  - CEREBRAL INFARCTION [None]
  - DECEREBRATION [None]
  - HYPOTENSION [None]
  - MYDRIASIS [None]
  - PERIORBITAL OEDEMA [None]
  - STAPHYLOCOCCAL BACTERAEMIA [None]
